FAERS Safety Report 11235505 (Version 1)
Quarter: 2015Q3

REPORT INFORMATION
  Report Type: Spontaneous
  Country: US (occurrence: US)
  Receive Date: 20150702
  Receipt Date: 20150702
  Transmission Date: 20151125
  Serious: No
  Sender: FDA-Public Use
  Company Number: US-BAYER-2015-370508

PATIENT
  Age: 37 Year
  Sex: Female

DRUGS (1)
  1. GADAVIST [Suspect]
     Active Substance: GADOBUTROL
     Indication: NUCLEAR MAGNETIC RESONANCE IMAGING BRAIN
     Dosage: UNK
     Dates: start: 20150629

REACTIONS (4)
  - Diarrhoea [None]
  - Headache [Recovered/Resolved]
  - Abdominal pain upper [None]
  - Abdominal discomfort [None]

NARRATIVE: CASE EVENT DATE: 20150629
